FAERS Safety Report 17829803 (Version 1)
Quarter: 2020Q2

REPORT INFORMATION
  Report Type: Spontaneous
  Country: US (occurrence: US)
  Receive Date: 20200527
  Receipt Date: 20200527
  Transmission Date: 20200714
  Serious: Yes (Other)
  Sender: FDA-Public Use
  Company Number: None

PATIENT
  Age: 44 Year
  Sex: Female
  Weight: 72 kg

DRUGS (13)
  1. DHA [Concomitant]
     Active Substance: DIETARY SUPPLEMENT
  2. VITAMIN D [Concomitant]
     Active Substance: VITAMIN D NOS
  3. PROBIOTIC [Concomitant]
     Active Substance: PROBIOTICS NOS
  4. MULTIVITAMIN [Concomitant]
     Active Substance: VITAMINS
  5. OMEGA 3 W/BIOCURE [Concomitant]
  6. CHROMIUM PICOLINATE [Concomitant]
     Active Substance: CHROMIUM PICOLINATE
  7. BIOTIN [Concomitant]
     Active Substance: BIOTIN
  8. GINGER EXTRACT [Concomitant]
  9. GREEN TEA EXTRACT (DIETARY SUPPLEMENT) [Concomitant]
     Active Substance: DIETARY SUPPLEMENT
  10. NP THYROID [Suspect]
     Active Substance: LEVOTHYROXINE\LIOTHYRONINE
     Indication: HYPOTHYROIDISM
     Dosage: ?          QUANTITY:1 TABLET(S);?
     Route: 048
     Dates: start: 20200504, end: 20200524
  11. ALLEGRA-D [Concomitant]
     Active Substance: FEXOFENADINE\PSEUDOEPHEDRINE
  12. ENZYME [Concomitant]
     Active Substance: UNSPECIFIED INGREDIENT
  13. XANAX [Concomitant]
     Active Substance: ALPRAZOLAM

REACTIONS (8)
  - Recalled product administered [None]
  - Heart rate increased [None]
  - Blood pressure increased [None]
  - Dizziness [None]
  - Tremor [None]
  - Panic attack [None]
  - Chest pain [None]
  - Pain in extremity [None]

NARRATIVE: CASE EVENT DATE: 20200506
